FAERS Safety Report 8059316-2 (Version None)
Quarter: 2012Q1

REPORT INFORMATION
  Report Type: 
  Country: None (occurrence: None)
  Receive Date: 20120118
  Receipt Date: 20120118
  Transmission Date: 20120608
  Serious: Yes (Other)
  Sender: FDA-Public Use
  Company Number: None

PATIENT
  Age: 66 Year
  Sex: Female

DRUGS (2)
  1. GLUCOSE OXIDASE+ LACTOFERRIN+LACTOPEROXIDASE+LYSOZYME )FORMUL (GLUCOS+ [Suspect]
  2. LACTOPEROXIDASE + LYSOZYME (FORMULATION UNKNOWN) LACTOPEROXIDASE + LYZ [Suspect]

REACTIONS (7)
  - ANAPHYLACTIC REACTION [None]
  - REACTION TO DRUG EXCIPIENTS [None]
  - DYSPNOEA [None]
  - SWOLLEN TONGUE [None]
  - WHEEZING [None]
  - SPEECH DISORDER [None]
  - HYPERSENSITIVITY [None]
